FAERS Safety Report 21159379 (Version 4)
Quarter: 2022Q3

REPORT INFORMATION
  Report Type: Spontaneous
  Country: GB (occurrence: GB)
  Receive Date: 20220802
  Receipt Date: 20220904
  Transmission Date: 20221026
  Serious: Yes (Other)
  Sender: FDA-Public Use
  Company Number: GB-MHRA-MED-202207221030088420-RTMQB

PATIENT
  Age: 74 Year
  Sex: Female

DRUGS (8)
  1. CETIRIZINE [Suspect]
     Active Substance: CETIRIZINE HYDROCHLORIDE
     Indication: Product used for unknown indication
  2. FULVESTRANT [Suspect]
     Active Substance: FULVESTRANT
     Indication: Product used for unknown indication
  3. LOPERAMIDE [Suspect]
     Active Substance: LOPERAMIDE
     Indication: Product used for unknown indication
     Dosage: 2MG; ;
  4. ALPELISIB [Suspect]
     Active Substance: ALPELISIB
     Indication: Product used for unknown indication
  5. DENOSUMAB [Suspect]
     Active Substance: DENOSUMAB
     Indication: Product used for unknown indication
  6. GLICLAZIDE [Suspect]
     Active Substance: GLICLAZIDE
     Indication: Product used for unknown indication
     Dosage: UNKNOWN; ;
  7. IMODIUM [Suspect]
     Active Substance: LOPERAMIDE HYDROCHLORIDE
     Indication: Product used for unknown indication
  8. INSULIN NOS [Concomitant]
     Active Substance: INSULIN NOS
     Indication: Product used for unknown indication

REACTIONS (7)
  - Neuropathy peripheral [Unknown]
  - Vulvovaginal candidiasis [Unknown]
  - Decreased appetite [Unknown]
  - Blood glucose increased [Unknown]
  - Dry mouth [Unknown]
  - Nausea [Unknown]
  - Fatigue [Unknown]
